FAERS Safety Report 7386619-7 (Version None)
Quarter: 2011Q1

REPORT INFORMATION
  Report Type: 
  Country: None (occurrence: None)
  Receive Date: 20110331
  Receipt Date: 20110328
  Transmission Date: 20110831
  Serious: Yes (Hospitalization)
  Sender: FDA-Public Use
  Company Number: FR-ROCHE-768149

PATIENT
  Sex: Female

DRUGS (13)
  1. LASIX [Concomitant]
  2. RILMENIDINE [Concomitant]
  3. DIFFU K [Concomitant]
  4. TAREG [Concomitant]
  5. UMULINE [Concomitant]
     Dosage: DRUG UMULINE NPH (26 IU IN THE EVENING)
  6. ROCEPHIN [Suspect]
     Dosage: FREQUENCY: DAILY, DOSE: 1 DOSE
     Route: 058
     Dates: start: 20101112, end: 20101120
  7. ROCEPHIN [Suspect]
     Dosage: FREQUENCY: DAILY, DOSE: 1 DOSE
     Route: 058
     Dates: start: 20101215, end: 20101220
  8. PLAVIX [Concomitant]
  9. EUPRESSYL [Concomitant]
  10. TAHOR [Concomitant]
  11. AMLODIPINE BESYLATE [Concomitant]
  12. NEXIUM [Concomitant]
  13. NOVOMIX [Concomitant]
     Dosage: INE IN THE MORNING.

REACTIONS (1)
  - VASCULITIS [None]
